FAERS Safety Report 17240833 (Version 4)
Quarter: 2020Q1

REPORT INFORMATION
  Report Type: Spontaneous
  Country: FR (occurrence: FR)
  Receive Date: 20200107
  Receipt Date: 20200225
  Transmission Date: 20200409
  Serious: Yes (Other)
  Sender: FDA-Public Use
  Company Number: FR-DENTSPLY-2019SCDP000706

PATIENT
  Age: 70 Year
  Sex: Male

DRUGS (9)
  1. NEBILOX [Concomitant]
     Active Substance: NEBIVOLOL HYDROCHLORIDE
     Indication: HYPERTENSION
     Dosage: UNK
     Route: 048
  2. ALDACTONE [Concomitant]
     Active Substance: SPIRONOLACTONE
     Indication: HYPERTENSION
     Dosage: UNK
     Route: 048
  3. NATRIXAM [Concomitant]
     Active Substance: AMLODIPINE\INDAPAMIDE
     Indication: HYPERTENSION
     Dosage: UNK
     Route: 048
  4. XYLOCAINE [Suspect]
     Active Substance: LIDOCAINE HYDROCHLORIDE
     Indication: PRODUCT USED FOR UNKNOWN INDICATION
     Dosage: UNK
     Route: 065
  5. OMEPRAZOLE. [Suspect]
     Active Substance: OMEPRAZOLE
     Indication: PRODUCT USED FOR UNKNOWN INDICATION
     Dosage: UNK
     Route: 065
  6. ZYLORIC [Suspect]
     Active Substance: ALLOPURINOL
     Indication: GOUT
     Dosage: 200 MILLIGRAM, SINGLE
     Route: 048
     Dates: start: 201712
  7. TAHOR [Concomitant]
     Active Substance: ATORVASTATIN CALCIUM
     Indication: PRODUCT USED FOR UNKNOWN INDICATION
     Dosage: COATED TABLET
     Route: 048
     Dates: end: 201910
  8. KENZEN [CANDESARTAN CILEXETIL] [Concomitant]
     Active Substance: CANDESARTAN CILEXETIL
     Indication: HYPERTENSION
     Dosage: UNK
     Route: 048
  9. KARDEGIC [Concomitant]
     Active Substance: ASPIRIN DL-LYSINE
     Indication: PRODUCT USED FOR UNKNOWN INDICATION
     Dosage: POWDER FOR ORAL SOLUTION
     Route: 048

REACTIONS (2)
  - Oral lichen planus [None]
  - Weight decreased [None]

NARRATIVE: CASE EVENT DATE: 201804
